FAERS Safety Report 24056384 (Version 1)
Quarter: 2024Q3

REPORT INFORMATION
  Report Type: Spontaneous
  Country: US (occurrence: US)
  Receive Date: 20240705
  Receipt Date: 20240705
  Transmission Date: 20241016
  Serious: No
  Sender: SANOFI AVENTIS
  Company Number: US-SA-SAC20240627001097

PATIENT
  Sex: Male
  Weight: 132 kg

DRUGS (15)
  1. DUPIXENT [Suspect]
     Active Substance: DUPILUMAB
     Indication: Asthma
     Dosage: 300 MG, QOW
     Route: 058
  2. MIRALAX [Concomitant]
     Active Substance: POLYETHYLENE GLYCOL 3350
  3. MELATONIN [Concomitant]
     Active Substance: MELATONIN
     Route: 048
  4. OXYMETAZOLINE HYDROCHLORIDE [Concomitant]
     Active Substance: OXYMETAZOLINE HYDROCHLORIDE
  5. VITAMIN B12 [Concomitant]
     Active Substance: CYANOCOBALAMIN
     Route: 048
  6. VITAMINS NOS [Concomitant]
     Active Substance: VITAMINS
     Route: 048
  7. PEPPERMINT OIL [Concomitant]
     Active Substance: PEPPERMINT OIL
  8. ALLEGRA ALLERGY [Concomitant]
     Active Substance: FEXOFENADINE HYDROCHLORIDE
     Route: 048
  9. NYSTATIN [Concomitant]
     Active Substance: NYSTATIN
  10. KETOCONAZOLE [Concomitant]
     Active Substance: KETOCONAZOLE
  11. OLOPATADINE HYDROCHLORIDE [Concomitant]
     Active Substance: OLOPATADINE HYDROCHLORIDE
  12. FLUTICASONE PROPIONATE [Concomitant]
     Active Substance: FLUTICASONE PROPIONATE
  13. ALBUTEROL SULFATE [Concomitant]
     Active Substance: ALBUTEROL SULFATE
  14. ALBUTEROL SULFATE [Concomitant]
     Active Substance: ALBUTEROL SULFATE
  15. AZELASTINE HYDROCHLORIDE [Concomitant]
     Active Substance: AZELASTINE HYDROCHLORIDE

REACTIONS (4)
  - Weight fluctuation [Unknown]
  - Developmental delay [Unknown]
  - Anxiety [Unknown]
  - Hypersensitivity [Unknown]
